FAERS Safety Report 18329813 (Version 1)
Quarter: 2020Q3

REPORT INFORMATION
  Report Type: Spontaneous
  Country: US (occurrence: US)
  Receive Date: 20200930
  Receipt Date: 20200930
  Transmission Date: 20201103
  Serious: Yes (Disabling, Other)
  Sender: FDA-Public Use
  Company Number: None

PATIENT
  Age: 74 Year
  Sex: Male
  Weight: 90 kg

DRUGS (1)
  1. REPATHA [Suspect]
     Active Substance: EVOLOCUMAB
     Indication: BLOOD CHOLESTEROL
     Dosage: QUANTITY:1 INJECTION(S);OTHER FREQUENCY:EVERY 2WKS;?
     Route: 030
     Dates: start: 20200814, end: 20200920

REACTIONS (4)
  - Oropharyngeal pain [None]
  - Influenza like illness [None]
  - Pain [None]
  - Swollen tongue [None]

NARRATIVE: CASE EVENT DATE: 20200901
